FAERS Safety Report 16652558 (Version 1)
Quarter: 2019Q3

REPORT INFORMATION
  Report Type: Spontaneous
  Country: US (occurrence: US)
  Receive Date: 20190731
  Receipt Date: 20190731
  Transmission Date: 20191004
  Serious: No
  Sender: FDA-Public Use
  Company Number: US-BRISTOL-MYERS SQUIBB COMPANY-BMS-2019-071769

PATIENT
  Sex: Female

DRUGS (1)
  1. ELIQUIS [Suspect]
     Active Substance: APIXABAN
     Indication: ISCHAEMIC STROKE
     Dosage: 5 MILLIGRAM, BID
     Route: 048

REACTIONS (3)
  - Drug interaction [Unknown]
  - Hormone level abnormal [Unknown]
  - Restless legs syndrome [Unknown]
